FAERS Safety Report 10206662 (Version 1)
Quarter: 2014Q2

REPORT INFORMATION
  Report Type: Spontaneous
  Country: NL (occurrence: NL)
  Receive Date: 20140530
  Receipt Date: 20140530
  Transmission Date: 20141212
  Serious: Yes (Hospitalization)
  Sender: FDA-Public Use
  Company Number: NL-BAYER-2014-077253

PATIENT
  Age: 43 Year
  Sex: Female

DRUGS (8)
  1. YASMIN [Suspect]
     Indication: CONTRACEPTION
     Dosage: 1 DF, QD
     Route: 048
     Dates: start: 19900827
  2. PANTOPRAZOLE [Concomitant]
     Dosage: 1 TIMES PER 1 DAYS 40 MG
  3. QUESTRAN [Concomitant]
     Dosage: 1 TIMES PER 1 DAYS 4 G
  4. LOSARTAN [Concomitant]
     Dosage: 1 TIMES PER 1 DAYS 50 MG
  5. CHLORTALIDONE [Concomitant]
     Dosage: 1 TIMES PER 1 DAYS 12.5 MG
  6. PARACETAMOL [Concomitant]
     Dosage: TIMES PER AS NECESSARY 1000 MG
  7. METOPROLOL [Concomitant]
     Dosage: 50 MG, QD
  8. DESLORATADINE [Concomitant]
     Dosage: TIMES PER AS NECESSARY 5 MG

REACTIONS (1)
  - Pancreatitis [Recovering/Resolving]
